FAERS Safety Report 23935064 (Version 1)
Quarter: 2024Q2

REPORT INFORMATION
  Report Type: Spontaneous
  Country: CN (occurrence: CN)
  Receive Date: 20240604
  Receipt Date: 20240604
  Transmission Date: 20240716
  Serious: Yes (Hospitalization, Other)
  Sender: FDA-Public Use
  Company Number: None

PATIENT
  Age: 4 Month
  Sex: Male
  Weight: 5.6 kg

DRUGS (9)
  1. CYCLOPHOSPHAMIDE [Suspect]
     Active Substance: CYCLOPHOSPHAMIDE
     Indication: Neuroblastoma
     Dosage: 0.18 G, ONE TIME IN ONE DAY, DILUTED WITH 100 ML OF SODIUM CHLORIDE, AT 08:00
     Route: 041
     Dates: start: 20240510, end: 20240510
  2. CYCLOPHOSPHAMIDE [Suspect]
     Active Substance: CYCLOPHOSPHAMIDE
     Indication: Neoplasm malignant
  3. SODIUM CHLORIDE [Suspect]
     Active Substance: SODIUM CHLORIDE
     Indication: Medication dilution
     Dosage: 100 ML, ONE TIME IN ONE DAY, USED TO DILUTE 0.18 G OF CYCLOPHOSPHAMIDE, AT 08:00
     Route: 041
     Dates: start: 20240510, end: 20240510
  4. SODIUM CHLORIDE [Suspect]
     Active Substance: SODIUM CHLORIDE
     Dosage: 200 ML, ONE TIME IN ONE DAY, USED TO DILUTE 0.1 G OF CARBOPLATIN, AT 08:00
     Route: 041
     Dates: start: 20240510, end: 20240510
  5. SODIUM CHLORIDE [Suspect]
     Active Substance: SODIUM CHLORIDE
     Dosage: 100 ML, ONE TIME IN 11 DAYS, USED TO DILUTE 5.6 MG OF DOXORUBICIN HYDROCHLORIDE, AT 08:00
     Route: 041
     Dates: start: 20240510, end: 20240510
  6. CARBOPLATIN [Suspect]
     Active Substance: CARBOPLATIN
     Indication: Neuroblastoma
     Dosage: 0.1 G, ONE TIME IN ONE DAY, DILUTED WITH 200 ML OF SODIUM CHLORIDE, AT 08:00
     Route: 041
     Dates: start: 20240510, end: 20240510
  7. CARBOPLATIN [Suspect]
     Active Substance: CARBOPLATIN
     Indication: Neoplasm malignant
  8. DOXORUBICIN HYDROCHLORIDE [Suspect]
     Active Substance: DOXORUBICIN HYDROCHLORIDE
     Indication: Neuroblastoma
     Dosage: 5.6 MG, ONE TIME IN 11 DAYS, DILUTED WITH 100 ML OF SODIUM CHLORIDE, AT 08:00
     Route: 041
     Dates: start: 20240510, end: 20240510
  9. DOXORUBICIN HYDROCHLORIDE [Suspect]
     Active Substance: DOXORUBICIN HYDROCHLORIDE
     Indication: Neoplasm malignant

REACTIONS (1)
  - Myelosuppression [Recovering/Resolving]

NARRATIVE: CASE EVENT DATE: 20240517
